FAERS Safety Report 9684635 (Version 1)
Quarter: 2013Q4

REPORT INFORMATION
  Report Type: Spontaneous
  Country: TR (occurrence: TR)
  Receive Date: 20131112
  Receipt Date: 20131112
  Transmission Date: 20140711
  Serious: Yes (Congenital Anomaly, Other)
  Sender: FDA-Public Use
  Company Number: TR-B.I. PHARMACEUTICALS,INC./RIDGEFIELD-2013-BI-35936GD

PATIENT
  Sex: Female
  Weight: 3.6 kg

DRUGS (5)
  1. IPRATROPIUMBROMID [Suspect]
     Indication: EXPOSURE DURING PREGNANCY
     Route: 064
  2. SALBUTAMOL [Suspect]
     Indication: EXPOSURE DURING PREGNANCY
     Route: 064
  3. MONTELUKAST SODIUM [Suspect]
     Indication: EXPOSURE DURING PREGNANCY
     Route: 064
  4. VITAMINS [Suspect]
     Indication: EXPOSURE DURING PREGNANCY
     Route: 064
  5. FOLIC ACID [Suspect]
     Indication: EXPOSURE DURING PREGNANCY
     Route: 064

REACTIONS (5)
  - Aplasia cutis congenita [Unknown]
  - Congenital hypertrichosis [Unknown]
  - Rash erythematous [Unknown]
  - Neck deformity [Unknown]
  - Hyperbilirubinaemia [Unknown]
